FAERS Safety Report 4526490-1 (Version None)
Quarter: 2004Q4

REPORT INFORMATION
  Report Type: 
  Country: None (occurrence: None)
  Receive Date: 20041214
  Receipt Date: 20041202
  Transmission Date: 20050328
  Serious: Yes (Other)
  Sender: FDA-Public Use
  Company Number: IT-BRISTOL-MYERS SQUIBB COMPANY-12783346

PATIENT
  Age: 43 Year
  Sex: Male

DRUGS (16)
  1. STAVUDINE [Suspect]
  2. LAMIVUDINE [Suspect]
  3. NELFINAVIR [Suspect]
  4. FLUCONAZOLE [Suspect]
  5. METHADONE HCL [Suspect]
     Indication: DRUG DEPENDENCE
  6. PROPRANOLOL [Concomitant]
  7. ENALAPRIL [Concomitant]
  8. FUROSEMIDE [Concomitant]
  9. ALDACTAZIDE [Concomitant]
  10. OMEPRAZOLE [Concomitant]
  11. ALLOPURINOL [Concomitant]
  12. PHYTONADIONE [Concomitant]
  13. LACTULOSE [Concomitant]
  14. CALCIUM LEVOFOLINATE [Concomitant]
  15. FERROUS SULFATE TAB [Concomitant]
  16. PAROMOMYCIN [Concomitant]

REACTIONS (19)
  - ATHEROSCLEROSIS [None]
  - BRADYCARDIA [None]
  - DILATATION ATRIAL [None]
  - DIZZINESS [None]
  - ELECTROCARDIOGRAM QT CORRECTED INTERVAL PROLONGED [None]
  - GENERAL PHYSICAL CONDITION ABNORMAL [None]
  - HYPERBILIRUBINAEMIA [None]
  - HYPERCREATININAEMIA [None]
  - HYPERTENSIVE CARDIOMYOPATHY [None]
  - LOSS OF CONSCIOUSNESS [None]
  - MITRAL VALVE DISEASE [None]
  - PANCYTOPENIA [None]
  - PERICARDIAL EFFUSION [None]
  - SINUS BRADYCARDIA [None]
  - SYNCOPE [None]
  - TORSADE DE POINTES [None]
  - VENTRICULAR ARRHYTHMIA [None]
  - VENTRICULAR EXTRASYSTOLES [None]
  - VERTIGO [None]
